FAERS Safety Report 7371038-X (Version None)
Quarter: 2011Q1

REPORT INFORMATION
  Report Type: 
  Country: None (occurrence: None)
  Receive Date: 20110318
  Receipt Date: 20110318
  Transmission Date: 20110831
  Serious: Yes (Other)
  Sender: FDA-Public Use
  Company Number: None

PATIENT
  Age: 36 Year
  Sex: Female

DRUGS (1)
  1. FENTANYL [Suspect]
     Indication: PAIN MANAGEMENT
     Dosage: 1 PATCH Q72H TRANSDERMAL
     Route: 062
     Dates: start: 20110116, end: 20110221

REACTIONS (3)
  - OEDEMA PERIPHERAL [None]
  - DRY MOUTH [None]
  - TONGUE BLISTERING [None]
